FAERS Safety Report 7657756-4 (Version None)
Quarter: 2011Q3

REPORT INFORMATION
  Report Type: 
  Country: None (occurrence: None)
  Receive Date: 20110805
  Receipt Date: 20110801
  Transmission Date: 20111222
  Serious: Yes (Hospitalization)
  Sender: FDA-Public Use
  Company Number: ES-AMGEN-ESPCT2011024788

PATIENT
  Age: 68 Year
  Sex: Female

DRUGS (5)
  1. PANITUMUMAB [Suspect]
     Indication: ANAL CANCER
     Dosage: 6 MG/KG, Q2WK
     Route: 042
     Dates: start: 20110404, end: 20110502
  2. DIAZEPAM [Concomitant]
     Dosage: 5 MG, QD
  3. FLUOROURACIL [Concomitant]
     Dosage: 1000 MG/M2, Q4WK
     Route: 042
     Dates: start: 20110404, end: 20110502
  4. LEVOTHYROXINE SODIUM [Concomitant]
     Dosage: 50 A?G, QD
     Dates: start: 20040101
  5. MITOMICINA C [Concomitant]
     Dosage: 10 MG/M2, Q4WK
     Route: 042
     Dates: start: 20110404, end: 20110502

REACTIONS (2)
  - ASTHENIA [None]
  - COLITIS [None]
